FAERS Safety Report 17994233 (Version 1)
Quarter: 2020Q3

REPORT INFORMATION
  Report Type: Spontaneous
  Country: US (occurrence: US)
  Receive Date: 20200707
  Receipt Date: 20200707
  Transmission Date: 20201103
  Serious: Yes (Hospitalization)
  Sender: FDA-Public Use
  Company Number: None

PATIENT
  Age: 65 Year
  Sex: Male

DRUGS (4)
  1. XELJANZ [Suspect]
     Active Substance: TOFACITINIB CITRATE
     Indication: RHEUMATOID ARTHRITIS
     Route: 048
     Dates: start: 20180831
  2. PREDNISONE. [Concomitant]
     Active Substance: PREDNISONE
  3. FLUOROURACIL. [Concomitant]
     Active Substance: FLUOROURACIL
  4. IOSARTAN [Concomitant]

REACTIONS (1)
  - Renal disorder [None]

NARRATIVE: CASE EVENT DATE: 20200706
